FAERS Safety Report 6038143-1 (Version None)
Quarter: 2009Q1

REPORT INFORMATION
  Report Type: 
  Country: None (occurrence: None)
  Receive Date: 20090115
  Receipt Date: 20090113
  Transmission Date: 20090719
  Serious: Yes (Death, Hospitalization)
  Sender: FDA-Public Use
  Company Number: JP-ASTRAZENECA-2008AP09611

PATIENT
  Age: 76 Year
  Sex: Male
  Weight: 64 kg

DRUGS (5)
  1. CRESTOR [Suspect]
     Indication: HYPERLIPIDAEMIA
     Route: 048
     Dates: start: 20080806, end: 20081126
  2. ASPIRIN [Concomitant]
     Indication: CEREBRAL INFARCTION
     Route: 048
     Dates: start: 20030208, end: 20081206
  3. PURSENNID [Concomitant]
     Indication: CONSTIPATION
     Route: 048
     Dates: start: 20030430, end: 20081211
  4. MUCOSTA [Concomitant]
     Indication: GASTRITIS
     Route: 048
     Dates: start: 20050330, end: 20081211
  5. NIVADIL [Concomitant]
     Indication: HYPERTENSION
     Route: 048
     Dates: start: 20080806, end: 20081206

REACTIONS (1)
  - HEPATIC FUNCTION ABNORMAL [None]
